FAERS Safety Report 9777371 (Version 2)
Quarter: 2014Q1

REPORT INFORMATION
  Report Type: Report from Study
  Country: ES (occurrence: ES)
  Receive Date: 20131221
  Receipt Date: 20140131
  Transmission Date: 20141002
  Serious: Yes (Other)
  Sender: FDA-Public Use
  Company Number: PHHY2013ES146261

PATIENT
  Age: 28 Year
  Sex: Male

DRUGS (1)
  1. EXTAVIA [Suspect]
     Indication: MULTIPLE SCLEROSIS
     Dosage: 1 ML, UNK
     Route: 058
     Dates: start: 20130525, end: 20131201

REACTIONS (3)
  - Spinal cord disorder [Unknown]
  - Concomitant disease progression [Unknown]
  - Drug ineffective [Unknown]
